FAERS Safety Report 16364138 (Version 2)
Quarter: 2019Q2

REPORT INFORMATION
  Report Type: Report from Study
  Country: US (occurrence: US)
  Receive Date: 20190528
  Receipt Date: 20190628
  Transmission Date: 20190711
  Serious: Yes (Other)
  Sender: FDA-Public Use
  Company Number: US-SHIRE-US201917054

PATIENT
  Sex: Female
  Weight: 74.2 kg

DRUGS (1)
  1. GATTEX [Suspect]
     Active Substance: TEDUGLUTIDE\WATER
     Indication: SHORT-BOWEL SYNDROME
     Dosage: 0.371 MILLILITER, 1X/DAY:QD
     Route: 050

REACTIONS (2)
  - Sinusitis [Unknown]
  - Hypersensitivity [Unknown]
